FAERS Safety Report 10238508 (Version 1)
Quarter: 2014Q2

REPORT INFORMATION
  Report Type: Spontaneous
  Country: GB (occurrence: GB)
  Receive Date: 20140616
  Receipt Date: 20140616
  Transmission Date: 20141212
  Serious: Yes (Other)
  Sender: FDA-Public Use
  Company Number: GB-TEVA-462462ISR

PATIENT
  Age: 49 Year
  Sex: Male
  Weight: 103 kg

DRUGS (14)
  1. AMLODIPINE [Suspect]
     Dates: start: 20140110
  2. PARACETAMOL [Concomitant]
     Dates: start: 20131016, end: 20140113
  3. SENNA [Concomitant]
     Dates: start: 20131016, end: 20140115
  4. SIMVASTATIN [Concomitant]
     Dates: start: 20131016, end: 20140113
  5. ALFUZOSIN [Concomitant]
     Dates: start: 20131016, end: 20140115
  6. CLOPIDOGREL [Concomitant]
     Dates: start: 20131016, end: 20131212
  7. LACTULOSE [Concomitant]
     Dates: start: 20131016, end: 20131101
  8. LACTULOSE [Concomitant]
     Dates: start: 20131216, end: 20140101
  9. ASPIRIN [Concomitant]
     Dates: start: 20131018, end: 20131115
  10. RAMIPRIL [Concomitant]
     Dates: start: 20131112, end: 20131210
  11. LANSOPRAZOLE [Concomitant]
     Dates: start: 20131112, end: 20131210
  12. IBUPROFEN [Concomitant]
     Dates: start: 20131112, end: 20131210
  13. FLUOXETINE [Concomitant]
     Dates: start: 20131202, end: 20140101
  14. LOSARTAN [Concomitant]
     Dates: start: 20140124

REACTIONS (1)
  - Headache [Not Recovered/Not Resolved]
